FAERS Safety Report 4562995-5 (Version None)
Quarter: 2005Q1

REPORT INFORMATION
  Report Type: 
  Country: None (occurrence: None)
  Receive Date: 20050127
  Receipt Date: 20050117
  Transmission Date: 20050727
  Serious: Yes (Hospitalization)
  Sender: FDA-Public Use
  Company Number: US-ABBOTT-05P-163-0286928-00

PATIENT
  Sex: Female
  Weight: 90.8 kg

DRUGS (14)
  1. HUMIRA [Suspect]
     Indication: RHEUMATOID ARTHRITIS
     Route: 058
     Dates: start: 20040101, end: 20041218
  2. METHOTREXATE SODIUM [Concomitant]
     Indication: RHEUMATOID ARTHRITIS
     Dosage: 7 TABS PER WEEK
     Route: 048
  3. ULTRACET [Concomitant]
     Indication: PAIN
     Route: 048
  4. PREDNISONE [Concomitant]
     Indication: RHEUMATOID ARTHRITIS
     Route: 048
  5. INSULIN GLARGINE [Concomitant]
     Indication: DIABETES MELLITUS
     Route: 058
     Dates: start: 20040101
  6. FOLIC ACID [Concomitant]
     Indication: DRUG USE FOR UNKNOWN INDICATION
     Route: 048
  7. VALSARTAN [Concomitant]
     Indication: BLOOD PRESSURE INCREASED
     Route: 048
  8. MAGNESIUM CHLORIDE ANHYDROUS [Concomitant]
     Indication: DRUG USE FOR UNKNOWN INDICATION
     Route: 048
  9. DIGOXIN [Concomitant]
     Indication: CARDIAC DISORDER
     Route: 048
  10. CARVEDILOL [Concomitant]
     Indication: BLOOD PRESSURE INCREASED
     Route: 048
  11. FUROSEMIDE [Concomitant]
     Indication: BLOOD PRESSURE INCREASED
     Route: 048
  12. MINOXIDAL [Concomitant]
     Indication: BLOOD PRESSURE INCREASED
     Route: 048
  13. VICODIN [Concomitant]
     Indication: PAIN
     Dosage: 5/500 1-2 TABS
     Route: 048
  14. PANTOPRAZOLE [Concomitant]
     Indication: GASTRIC DISORDER
     Route: 048

REACTIONS (6)
  - ANAEMIA [None]
  - FATIGUE [None]
  - HYPERTENSION [None]
  - LOSS OF CONSCIOUSNESS [None]
  - PULMONARY OEDEMA [None]
  - RESPIRATORY FAILURE [None]
